FAERS Safety Report 7293587-5 (Version None)
Quarter: 2011Q1

REPORT INFORMATION
  Report Type: 
  Country: None (occurrence: None)
  Receive Date: 20110215
  Receipt Date: 20110209
  Transmission Date: 20110831
  Serious: No
  Sender: FDA-Public Use
  Company Number: US-PFIZER INC-US-WYE-H15879910

PATIENT
  Sex: Male
  Weight: 81.7 kg

DRUGS (4)
  1. ADVIL [Suspect]
     Indication: PAIN
     Dosage: 800 MG, 1X/DAY
     Route: 065
  2. TYLENOL [Suspect]
     Indication: HEADACHE
     Dosage: 500 MG, 4X/DAY
     Route: 048
  3. PRISTIQ [Suspect]
     Indication: DEPRESSION
     Dosage: 50 MG, 1X/DAY
     Route: 048
     Dates: start: 20100617
  4. REMICADE [Suspect]
     Indication: CROHN'S DISEASE
     Dosage: UNK
     Route: 042

REACTIONS (2)
  - SOMNOLENCE [None]
  - HEADACHE [None]
